FAERS Safety Report 16024142 (Version 1)
Quarter: 2019Q1

REPORT INFORMATION
  Report Type: Spontaneous
  Country: US (occurrence: US)
  Receive Date: 20190301
  Receipt Date: 20190301
  Transmission Date: 20190418
  Serious: No
  Sender: FDA-Public Use
  Company Number: US-IMPAX LABORATORIES, LLC-2018-IPXL-03302

PATIENT
  Sex: Female

DRUGS (1)
  1. EMVERM [Suspect]
     Active Substance: MEBENDAZOLE
     Indication: PROPHYLAXIS
     Dosage: UNK, ONCE, REPEAT IN TWO WEEK
     Route: 048
     Dates: start: 20180921

REACTIONS (3)
  - Muscle spasms [Recovered/Resolved]
  - Malaise [Recovered/Resolved]
  - Nausea [Recovered/Resolved]

NARRATIVE: CASE EVENT DATE: 20180921
